FAERS Safety Report 5677182-7 (Version None)
Quarter: 2008Q1

REPORT INFORMATION
  Report Type: 
  Country: None (occurrence: None)
  Receive Date: 20080324
  Receipt Date: 20080319
  Transmission Date: 20080703
  Serious: Yes (Death)
  Sender: FDA-Public Use
  Company Number: B0513472A

PATIENT
  Sex: Female

DRUGS (1)
  1. HYCAMTIN [Suspect]
     Indication: OVARIAN CANCER METASTATIC
     Dosage: 1.5MGM2 PER DAY
     Route: 042
     Dates: start: 20080227, end: 20080302

REACTIONS (3)
  - ILEUS [None]
  - NEUTROPENIA [None]
  - THROMBOCYTOPENIA [None]
